FAERS Safety Report 17312989 (Version 2)
Quarter: 2020Q1

REPORT INFORMATION
  Report Type: Spontaneous
  Country: GB (occurrence: GB)
  Receive Date: 20200124
  Receipt Date: 20200224
  Transmission Date: 20200409
  Serious: Yes (Hospitalization)
  Sender: FDA-Public Use
  Company Number: GB-ROCHE-2530071

PATIENT
  Age: 59 Year
  Sex: Female
  Weight: 69 kg

DRUGS (4)
  1. ATEZOLIZUMAB. [Suspect]
     Active Substance: ATEZOLIZUMAB
     Indication: NON-SMALL CELL LUNG CANCER
     Route: 042
     Dates: start: 2019
  2. AMITRIPTYLINE [Concomitant]
     Active Substance: AMITRIPTYLINE
     Indication: PAIN
     Route: 048
  3. LEVOTHYROXINE. [Concomitant]
     Active Substance: LEVOTHYROXINE
     Indication: HYPOTHYROIDISM
     Route: 048
  4. TEMAZEPAM. [Concomitant]
     Active Substance: TEMAZEPAM
     Indication: INSOMNIA
     Route: 065

REACTIONS (3)
  - Pneumonia viral [Recovered/Resolved]
  - Pneumonitis [Unknown]
  - Pneumonia bacterial [Recovered/Resolved]

NARRATIVE: CASE EVENT DATE: 2019
